FAERS Safety Report 6484029-8 (Version None)
Quarter: 2009Q4

REPORT INFORMATION
  Report Type: 
  Country: None (occurrence: None)
  Receive Date: 20091209
  Receipt Date: 20091127
  Transmission Date: 20100525
  Serious: Yes (Other)
  Sender: FDA-Public Use
  Company Number: AU-BAYER-200941443GPV

PATIENT
  Sex: Female

DRUGS (1)
  1. ASPRO CLEAR [Suspect]
     Indication: DRUG USE FOR UNKNOWN INDICATION
     Route: 048
     Dates: start: 20091127, end: 20091127

REACTIONS (4)
  - FOREIGN BODY [None]
  - LIMB INJURY [None]
  - MOUTH INJURY [None]
  - PHARYNGEAL INJURY [None]
